FAERS Safety Report 18961415 (Version 1)
Quarter: 2021Q1

REPORT INFORMATION
  Report Type: Spontaneous
  Country: US (occurrence: US)
  Receive Date: 20210302
  Receipt Date: 20210302
  Transmission Date: 20210420
  Serious: No
  Sender: FDA-Public Use
  Company Number: US-THERAPEUTICSMD-2021TMD00424

PATIENT
  Age: 18 Year
  Sex: Female
  Weight: 55.33 kg

DRUGS (6)
  1. ANNOVERA [Suspect]
     Active Substance: ETHINYL ESTRADIOL\SEGESTERONE ACETATE
     Indication: MENSTRUAL DISORDER
     Dosage: 1 RING, CONTINUOUSLY
     Route: 067
  2. SUMATRIPTAN. [Concomitant]
     Active Substance: SUMATRIPTAN
  3. NUVARING [Suspect]
     Active Substance: ETHINYL ESTRADIOL\ETONOGESTREL
     Dosage: UNK
  4. ZYRTEC [Concomitant]
     Active Substance: CETIRIZINE HYDROCHLORIDE
  5. MULTIVITAMIN [Concomitant]
     Active Substance: VITAMINS
  6. ANNOVERA [Suspect]
     Active Substance: ETHINYL ESTRADIOL\SEGESTERONE ACETATE
     Indication: CONTRACEPTION
     Dosage: 1 RING, CONTINUOUSLY
     Route: 067
     Dates: start: 20201111

REACTIONS (3)
  - Metrorrhagia [Recovered/Resolved]
  - Off label use [Not Recovered/Not Resolved]
  - Device material issue [Not Recovered/Not Resolved]

NARRATIVE: CASE EVENT DATE: 20201111
